FAERS Safety Report 8770717 (Version 3)
Quarter: 2015Q4

REPORT INFORMATION
  Report Type: Report from Study
  Country: AT (occurrence: AT)
  Receive Date: 20120907
  Receipt Date: 20151030
  Transmission Date: 20160305
  Serious: Yes (Death, Hospitalization, Disabling, Other)
  Sender: FDA-Public Use
  Company Number: AT-ROCHE-1107241

PATIENT
  Age: 61 Year
  Sex: Male

DRUGS (13)
  1. BEVACIZUMAB [Suspect]
     Active Substance: BEVACIZUMAB
     Indication: ANAPLASTIC ASTROCYTOMA
     Route: 042
     Dates: start: 20100416
  2. FORTECORTIN [Concomitant]
     Active Substance: DEXAMETHASONE
     Route: 065
  3. IRINOTECAN [Suspect]
     Active Substance: IRINOTECAN
     Route: 042
     Dates: start: 20100720
  4. VIMPAT [Concomitant]
     Active Substance: LACOSAMIDE
     Route: 065
  5. BEVACIZUMAB [Suspect]
     Active Substance: BEVACIZUMAB
     Dosage: DOSE: 30/APR/2010 AND 14/MAY/2015
     Route: 042
     Dates: start: 20100423, end: 20100528
  6. KEPPRA [Concomitant]
     Active Substance: LEVETIRACETAM
     Dosage: 1.5 / 2 DAYS
     Route: 065
  7. LOVENOX [Concomitant]
     Active Substance: ENOXAPARIN SODIUM
     Route: 065
  8. IRINOTECAN [Suspect]
     Active Substance: IRINOTECAN
     Route: 042
     Dates: start: 20100603
  9. BEVACIZUMAB [Suspect]
     Active Substance: BEVACIZUMAB
     Route: 042
     Dates: end: 20100609
  10. NOVALGIN (AUSTRIA) [Concomitant]
     Route: 048
  11. BEVACIZUMAB [Suspect]
     Active Substance: BEVACIZUMAB
     Route: 042
     Dates: end: 20100719
  12. IRINOTECAN [Suspect]
     Active Substance: IRINOTECAN
     Indication: ANAPLASTIC ASTROCYTOMA
     Route: 042
     Dates: start: 20100423, end: 20100528
  13. FURADANTIN RETARD [Concomitant]
     Route: 065

REACTIONS (6)
  - Lumbar vertebral fracture [Recovered/Resolved]
  - Pulmonary embolism [Fatal]
  - Nephrolithiasis [Recovered/Resolved]
  - Urinary tract infection [Recovering/Resolving]
  - Erysipelas [Recovering/Resolving]
  - Abscess limb [Recovering/Resolving]

NARRATIVE: CASE EVENT DATE: 20100528
